FAERS Safety Report 7388829-1 (Version None)
Quarter: 2011Q2

REPORT INFORMATION
  Report Type: 
  Country: None (occurrence: None)
  Receive Date: 20110401
  Receipt Date: 20110326
  Transmission Date: 20111010
  Serious: Yes (Hospitalization, Other)
  Sender: FDA-Public Use
  Company Number: TR-ABBOTT-11P-161-0714564-00

PATIENT
  Age: 59 Year
  Sex: Male

DRUGS (1)
  1. HUMIRA [Suspect]
     Indication: PSORIATIC ARTHROPATHY
     Dates: start: 20091201, end: 20110228

REACTIONS (5)
  - PULMONARY TUBERCULOSIS [None]
  - SPLEEN TUBERCULOSIS [None]
  - ASTHENIA [None]
  - PAIN [None]
  - PYREXIA [None]
